FAERS Safety Report 17659393 (Version 1)
Quarter: 2020Q2

REPORT INFORMATION
  Report Type: Spontaneous
  Country: DE (occurrence: DE)
  Receive Date: 20200413
  Receipt Date: 20200413
  Transmission Date: 20200713
  Serious: Yes (Hospitalization)
  Sender: FDA-Public Use
  Company Number: DE-TEVA-2020-DE-1222100

PATIENT
  Age: 66 Year
  Sex: Female

DRUGS (3)
  1. CARBOPLATIN. [Suspect]
     Active Substance: CARBOPLATIN
     Dosage: 220 MG, LAST ON 27-FEB-2020
     Route: 065
  2. GEMCITABINE. [Suspect]
     Active Substance: GEMCITABINE
     Dosage: 1500 MG, LAST ON 27-FEB-2020
     Route: 065
  3. PANTOPRAZOL [Concomitant]
     Active Substance: PANTOPRAZOLE SODIUM
     Dosage: 40 MG, 1-0-0-0

REACTIONS (5)
  - Pallor [Unknown]
  - Thrombocytopenia [Unknown]
  - General physical health deterioration [Unknown]
  - Neutropenia [Unknown]
  - Anaemia [Unknown]
